FAERS Safety Report 10735290 (Version 1)
Quarter: 2015Q1

REPORT INFORMATION
  Report Type: Spontaneous
  Country: US (occurrence: US)
  Receive Date: 20150125
  Receipt Date: 20150125
  Transmission Date: 20150721
  Serious: No
  Sender: FDA-Public Use
  Company Number: US-NOVEN-14US010605

PATIENT
  Age: 64 Year
  Sex: Female
  Weight: 79.82 kg

DRUGS (1)
  1. BRISDELLE [Suspect]
     Active Substance: PAROXETINE MESYLATE
     Indication: HOT FLUSH
     Dosage: 7.5 MG, BEDTIME
     Route: 048
     Dates: start: 20140725, end: 20140825

REACTIONS (2)
  - Hot flush [Unknown]
  - Insomnia [Unknown]

NARRATIVE: CASE EVENT DATE: 20140725
